FAERS Safety Report 24171285 (Version 1)
Quarter: 2024Q3

REPORT INFORMATION
  Report Type: Report from Study
  Country: US (occurrence: US)
  Receive Date: 20240805
  Receipt Date: 20240805
  Transmission Date: 20241017
  Serious: No
  Sender: RANBAXY
  Company Number: US-SUN PHARMACEUTICAL INDUSTRIES LTD-2022R1-358911

PATIENT
  Age: 77 Year
  Sex: Male

DRUGS (1)
  1. SONIDEGIB [Suspect]
     Active Substance: SONIDEGIB
     Indication: Product used for unknown indication
     Dosage: 200 MILLIGRAM, OD
     Route: 065
     Dates: start: 20220824

REACTIONS (1)
  - Therapy interrupted [Not Recovered/Not Resolved]

NARRATIVE: CASE EVENT DATE: 20221003
